FAERS Safety Report 4846817-0 (Version None)
Quarter: 2005Q4

REPORT INFORMATION
  Report Type: 
  Country: None (occurrence: None)
  Receive Date: 20051207
  Receipt Date: 20050909
  Transmission Date: 20060501
  Serious: Yes (Death, Other)
  Sender: FDA-Public Use
  Company Number: PHBS2005MY17844

PATIENT
  Age: 17 Year
  Sex: Female

DRUGS (1)
  1. GLEEVEC [Suspect]
     Indication: CHRONIC MYELOID LEUKAEMIA
     Route: 065

REACTIONS (3)
  - DEATH [None]
  - JAUNDICE [None]
  - SEPSIS [None]
